FAERS Safety Report 14872245 (Version 4)
Quarter: 2019Q3

REPORT INFORMATION
  Report Type: Report from Study
  Country: DE (occurrence: DE)
  Receive Date: 20180509
  Receipt Date: 20190812
  Transmission Date: 20191004
  Serious: Yes (Hospitalization)
  Sender: FDA-Public Use
  Company Number: DE-BIOGEN-2018BI00571913

PATIENT
  Sex: Female

DRUGS (12)
  1. TECFIDERA [Suspect]
     Active Substance: DIMETHYL FUMARATE
     Indication: MULTIPLE SCLEROSIS
     Dosage: MAINTENANCE DOSE
     Route: 050
     Dates: start: 20170107
  2. BACLOFEN. [Concomitant]
     Active Substance: BACLOFEN
     Indication: PRODUCT USED FOR UNKNOWN INDICATION
     Route: 050
  3. GABAPENTIN. [Concomitant]
     Active Substance: GABAPENTIN
     Route: 050
  4. FAMENITA [Concomitant]
     Active Substance: PROGESTERONE
     Indication: PRODUCT USED FOR UNKNOWN INDICATION
     Route: 050
  5. FAMENITA [Concomitant]
     Active Substance: PROGESTERONE
     Route: 050
  6. BACLOFEN DURA [Concomitant]
     Indication: MUSCLE SPASTICITY
     Route: 050
  7. FUROSEMID [Concomitant]
     Active Substance: FUROSEMIDE
     Indication: PRODUCT USED FOR UNKNOWN INDICATION
     Route: 050
  8. SPIRONOLAKTON [Concomitant]
     Active Substance: SPIRONOLACTONE
     Indication: DEFAECATION DISORDER
     Route: 050
  9. SPASMEX [Concomitant]
     Indication: MUSCLE SPASTICITY
     Route: 050
  10. GABAPENTIN. [Concomitant]
     Active Substance: GABAPENTIN
     Indication: PAIN
     Route: 050
  11. SPASMEX [Concomitant]
     Route: 050
  12. AMITRIPTILIN [Concomitant]
     Indication: PRODUCT USED FOR UNKNOWN INDICATION
     Route: 050

REACTIONS (3)
  - Lymphocyte count decreased [Recovered/Resolved]
  - Gait disturbance [Recovered/Resolved with Sequelae]
  - Areflexia [Recovered/Resolved with Sequelae]

NARRATIVE: CASE EVENT DATE: 2018
